FAERS Safety Report 23520259 (Version 1)
Quarter: 2024Q1

REPORT INFORMATION
  Report Type: Spontaneous
  Country: US (occurrence: US)
  Receive Date: 20240214
  Receipt Date: 20240214
  Transmission Date: 20240409
  Serious: No
  Sender: FDA-Public Use
  Company Number: US-ALMIRALL-US-2024-0274

PATIENT

DRUGS (3)
  1. KLISYRI [Suspect]
     Active Substance: TIRBANIBULIN
  2. IMIQUIMOD [Concomitant]
     Active Substance: IMIQUIMOD
  3. FLUOROURACIL [Concomitant]
     Active Substance: FLUOROURACIL

REACTIONS (3)
  - Drug ineffective [Unknown]
  - Drug intolerance [Unknown]
  - Adverse drug reaction [Unknown]
